FAERS Safety Report 6666984-6 (Version None)
Quarter: 2010Q2

REPORT INFORMATION
  Report Type: 
  Country: None (occurrence: None)
  Receive Date: 20100405
  Receipt Date: 20100319
  Transmission Date: 20101027
  Serious: No
  Sender: FDA-Public Use
  Company Number: US-B.I. PHARMACEUTICALS,INC./RIDGEFIELD-2010-BP-03256BP

PATIENT
  Age: 74 Year
  Sex: Female

DRUGS (4)
  1. CATAPRES-TTS-1 [Suspect]
     Indication: HYPERTENSION
     Dosage: 0.3 MG
     Route: 061
     Dates: start: 20090701
  2. POTASSIUM [Concomitant]
     Indication: BLOOD POTASSIUM DECREASED
  3. ASPIRIN [Concomitant]
     Indication: CARDIAC DISORDER
  4. HYDROCHLOROTHIAZIDE [Concomitant]
     Indication: POLYURIA

REACTIONS (1)
  - APPLICATION SITE RASH [None]
